FAERS Safety Report 4678367-9 (Version None)
Quarter: 2005Q2

REPORT INFORMATION
  Report Type: 
  Country: None (occurrence: None)
  Receive Date: 20050601
  Receipt Date: 20050520
  Transmission Date: 20051028
  Serious: Yes (Hospitalization)
  Sender: FDA-Public Use
  Company Number: US-KINGPHARMUSA00001-K200500672

PATIENT
  Age: 60 Year
  Sex: Male

DRUGS (1)
  1. TIGAN CAPSULES [Suspect]
     Indication: NAUSEA
     Route: 048
     Dates: start: 20050101, end: 20050520

REACTIONS (2)
  - CONDITION AGGRAVATED [None]
  - THROMBOTIC THROMBOCYTOPENIC PURPURA [None]
